FAERS Safety Report 20394666 (Version 1)
Quarter: 2022Q1

REPORT INFORMATION
  Report Type: Spontaneous
  Country: US (occurrence: US)
  Receive Date: 20220129
  Receipt Date: 20220129
  Transmission Date: 20220423
  Serious: No
  Sender: FDA-Public Use
  Company Number: US-TEVA-2022-US-2001443

PATIENT
  Sex: Male

DRUGS (1)
  1. CARBIDOPA\LEVODOPA [Suspect]
     Active Substance: CARBIDOPA\LEVODOPA
     Dosage: 25 MG / 100 MG, 3 TABLETS 8AM, 2 TABLETS NOON AND 3 TABLETS 8PM
     Route: 065

REACTIONS (2)
  - Aphonia [Unknown]
  - Product solubility abnormal [Unknown]
